FAERS Safety Report 25554934 (Version 1)
Quarter: 2025Q3

REPORT INFORMATION
  Report Type: Spontaneous
  Country: GB (occurrence: GB)
  Receive Date: 20250715
  Receipt Date: 20250715
  Transmission Date: 20251020
  Serious: Yes (Hospitalization, Other)
  Sender: CELLTRION
  Company Number: GB-CELLTRION INC.-2024GB029603

PATIENT

DRUGS (1)
  1. INFLIXIMAB [Suspect]
     Active Substance: INFLIXIMAB
     Indication: Crohn^s disease
     Dosage: 120 MG PRE FILLED PEN; 120 MG/1ML SOLUTION FOR INJECTION PRE-FILLED PEN - INJECT ONE PRE-FILLED PEN
     Route: 058
     Dates: start: 202408

REACTIONS (5)
  - Abortion induced [Recovered/Resolved]
  - Endometriosis [Recovered/Resolved]
  - Uterine infection [Recovered/Resolved]
  - Off label use [Unknown]
  - Maternal exposure during pregnancy [Unknown]

NARRATIVE: CASE EVENT DATE: 20250301
